FAERS Safety Report 5522191-1 (Version None)
Quarter: 2007Q4

REPORT INFORMATION
  Report Type: 
  Country: None (occurrence: None)
  Receive Date: 20071120
  Receipt Date: 20071117
  Transmission Date: 20080405
  Serious: Yes (Hospitalization, Other)
  Sender: FDA-Public Use
  Company Number: A0695454A

PATIENT
  Age: 7 Year
  Sex: Male
  Weight: 20 kg

DRUGS (1)
  1. ZOFRAN [Suspect]
     Indication: DRUG USE FOR UNKNOWN INDICATION
     Dosage: 14TAB SINGLE DOSE
     Route: 048
     Dates: start: 20071114, end: 20071114

REACTIONS (2)
  - OVERDOSE [None]
  - SUICIDAL IDEATION [None]
